FAERS Safety Report 7081558-3 (Version None)
Quarter: 2010Q4

REPORT INFORMATION
  Report Type: 
  Country: None (occurrence: None)
  Receive Date: 20101103
  Receipt Date: 20101025
  Transmission Date: 20110411
  Serious: Yes (Other)
  Sender: FDA-Public Use
  Company Number: US-ASTRAZENECA-2010SE50434

PATIENT
  Age: 55 Year
  Sex: Male
  Weight: 96.2 kg

DRUGS (5)
  1. NEXIUM [Suspect]
     Indication: BARRETT'S OESOPHAGUS
     Route: 048
     Dates: start: 19990101
  2. PRILOSEC [Suspect]
     Indication: GASTROOESOPHAGEAL REFLUX DISEASE
     Route: 048
  3. LIPITOR [Concomitant]
  4. SYNTHROID [Concomitant]
  5. TOPROL-XL [Concomitant]

REACTIONS (2)
  - BARRETT'S OESOPHAGUS [None]
  - OESOPHAGEAL CARCINOMA [None]
